FAERS Safety Report 5776857-9 (Version None)
Quarter: 2008Q2

REPORT INFORMATION
  Report Type: 
  Country: None (occurrence: None)
  Receive Date: 20080618
  Receipt Date: 20080429
  Transmission Date: 20081010
  Serious: No
  Sender: FDA-Public Use
  Company Number: US-ASTRAZENECA-2008UW08674

PATIENT
  Age: 74 Year
  Sex: Female
  Weight: 61.2 kg

DRUGS (7)
  1. SYMBICORT [Suspect]
     Indication: CHRONIC OBSTRUCTIVE PULMONARY DISEASE
     Dosage: 80/4.5 MCG BID
     Route: 055
     Dates: start: 20080101
  2. SYMBICORT [Suspect]
     Indication: ASTHMA
     Dosage: 80/4.5 MCG BID
     Route: 055
     Dates: start: 20080101
  3. MAXIAR INHALER [Concomitant]
     Route: 055
  4. HYZAAR [Concomitant]
  5. LIPITOR [Concomitant]
  6. ASPIRIN [Concomitant]
  7. METHYLPREDNISOLONE [Concomitant]

REACTIONS (4)
  - BURNING SENSATION [None]
  - GLOSSITIS [None]
  - PHARYNGOLARYNGEAL PAIN [None]
  - SINUS CONGESTION [None]
